FAERS Safety Report 7042050-5 (Version None)
Quarter: 2010Q4

REPORT INFORMATION
  Report Type: 
  Country: None (occurrence: None)
  Receive Date: 20101013
  Receipt Date: 20100225
  Transmission Date: 20110411
  Serious: No
  Sender: FDA-Public Use
  Company Number: US-ASTRAZENECA-2010SE01205

PATIENT
  Age: 60 Year
  Sex: Female
  Weight: 68 kg

DRUGS (3)
  1. SYMBICORT [Suspect]
     Dosage: 160/4.5MG, 2 PUFFS BID
     Route: 055
     Dates: start: 20090701
  2. VITAMINS [Concomitant]
  3. MEDICINE FOR WHEEZING [Concomitant]

REACTIONS (2)
  - DEVICE MALFUNCTION [None]
  - DYSPNOEA [None]
